FAERS Safety Report 5673264-4 (Version None)
Quarter: 2008Q1

REPORT INFORMATION
  Report Type: 
  Country: None (occurrence: None)
  Receive Date: 20080319
  Receipt Date: 20080312
  Transmission Date: 20080703
  Serious: Yes (Other)
  Sender: FDA-Public Use
  Company Number: DE-ABBOTT-08P-062-0442235-00

PATIENT
  Sex: Male

DRUGS (2)
  1. ERGENYL CHRONOSHERE [Suspect]
     Indication: DRUG USE FOR UNKNOWN INDICATION
     Dosage: INCREASING DOSES UP TO 1000 MG
     Route: 048
  2. QUETIAPINE FUMARATE [Concomitant]
     Indication: DRUG USE FOR UNKNOWN INDICATION
     Route: 048

REACTIONS (1)
  - BLOOD CREATINE PHOSPHOKINASE INCREASED [None]
